FAERS Safety Report 4364276-1 (Version None)
Quarter: 2004Q2

REPORT INFORMATION
  Report Type: 
  Country: None (occurrence: None)
  Receive Date: 20040525
  Receipt Date: 20040429
  Transmission Date: 20050107
  Serious: Yes (Life-Threatening, Hospitalization)
  Sender: FDA-Public Use
  Company Number: US-MERCK-0404USA02596

PATIENT
  Age: 83 Year
  Sex: Female

DRUGS (3)
  1. VIOXX [Suspect]
     Route: 048
     Dates: start: 20010101
  2. VIOXX [Suspect]
     Route: 048
     Dates: start: 20010114
  3. BEXTRA [Concomitant]
     Route: 065
     Dates: start: 20010101

REACTIONS (2)
  - DRUG INEFFECTIVE [None]
  - GASTRIC ULCER PERFORATION [None]
